APPROVED DRUG PRODUCT: BENZONATATE
Active Ingredient: BENZONATATE
Strength: 100MG
Dosage Form/Route: CAPSULE;ORAL
Application: A040682 | Product #001 | TE Code: AA
Applicant: HERITAGE PHARMACEUTICALS LABS INC DBA AVET PHARMACEUTICALS LABS INC
Approved: Jul 30, 2007 | RLD: No | RS: No | Type: RX